FAERS Safety Report 24418434 (Version 2)
Quarter: 2025Q2

REPORT INFORMATION
  Report Type: Report from Study
  Country: US (occurrence: US)
  Receive Date: 20241009
  Receipt Date: 20250409
  Transmission Date: 20250716
  Serious: Yes (Death, Hospitalization, Other)
  Sender: SANOFI AVENTIS
  Company Number: US-SA-2024SA290138

PATIENT
  Age: 91 Year
  Sex: Female

DRUGS (2)
  1. DRONEDARONE [Suspect]
     Active Substance: DRONEDARONE
     Indication: Atrial fibrillation
     Dosage: 400 MG, QD
     Route: 048
  2. DRONEDARONE [Suspect]
     Active Substance: DRONEDARONE
     Dosage: 400 MG, BID

REACTIONS (4)
  - Metastatic malignant melanoma [Fatal]
  - Hypotension [Unknown]
  - Renal failure [Unknown]
  - Off label use [Unknown]

NARRATIVE: CASE EVENT DATE: 20250303
